FAERS Safety Report 24109736 (Version 1)
Quarter: 2024Q3

REPORT INFORMATION
  Report Type: Spontaneous
  Country: NO (occurrence: NO)
  Receive Date: 20240718
  Receipt Date: 20240718
  Transmission Date: 20241016
  Serious: Yes (Other)
  Sender: PFIZER
  Company Number: None

PATIENT
  Age: 31 Year
  Sex: Female
  Weight: 79 kg

DRUGS (6)
  1. KETAMINE HYDROCHLORIDE [Interacting]
     Active Substance: KETAMINE HYDROCHLORIDE
     Dosage: UNK
  2. FENTANYL [Interacting]
     Active Substance: FENTANYL\FENTANYL CITRATE
     Indication: Analgesic therapy
     Dosage: UNK
  3. MORPHINE [Interacting]
     Active Substance: MORPHINE
     Indication: Analgesic therapy
     Dosage: UNK
  4. BUPROPION HYDROCHLORIDE\NALTREXONE HYDROCHLORIDE [Interacting]
     Active Substance: BUPROPION HYDROCHLORIDE\NALTREXONE HYDROCHLORIDE
     Indication: Overweight
     Dosage: 2 DF, 2X/DAY (EVERY 12 HOURS)
     Route: 048
     Dates: start: 202309
  5. TRAMADOL [Interacting]
     Active Substance: TRAMADOL\TRAMADOL HYDROCHLORIDE
     Indication: Analgesic therapy
     Dosage: UNK
  6. NEURONTIN [Concomitant]
     Active Substance: GABAPENTIN
     Indication: Pain in extremity
     Dosage: 600 MG, 3X/DAY

REACTIONS (3)
  - Drug interaction [Not Recovered/Not Resolved]
  - Therapy non-responder [Not Recovered/Not Resolved]
  - Pain [Not Recovered/Not Resolved]

NARRATIVE: CASE EVENT DATE: 20240110
